FAERS Safety Report 9889656 (Version 3)
Quarter: 2014Q1

REPORT INFORMATION
  Report Type: Spontaneous
  Country: JP (occurrence: JP)
  Receive Date: 20140211
  Receipt Date: 20140221
  Transmission Date: 20141002
  Serious: Yes (Other)
  Sender: FDA-Public Use
  Company Number: JP-PFIZER INC-2014035581

PATIENT
  Age: 35 Year
  Sex: Male

DRUGS (6)
  1. CISPLATIN [Suspect]
     Indication: EXTRASKELETAL OSTEOSARCOMA METASTATIC
     Dosage: 460 MG, CYCLIC (FIRST AND SECOND CYCLES)
  2. DOXORUBICIN HCL [Suspect]
     Indication: EXTRASKELETAL OSTEOSARCOMA METASTATIC
     Dosage: 114 MG, CYCLIC(FIRST AND SECOND CYCLES)
  3. DOXORUBICIN HCL [Suspect]
     Dosage: 106 MG, CYCLIC (THIRD CYCLE)
  4. IFOSFAMIDE [Suspect]
     Indication: EXTRASKELETAL OSTEOSARCOMA METASTATIC
     Dosage: 17.5 G, CYCLIC
  5. MESNA [Suspect]
     Indication: EXTRASKELETAL OSTEOSARCOMA METASTATIC
     Dosage: 10.5 G, CYCLIC
  6. CAFFEINE [Suspect]
     Indication: EXTRASKELETAL OSTEOSARCOMA METASTATIC
     Dosage: 14.4 G, CYCLIC (FIRST AND SECOND CYCLES)

REACTIONS (4)
  - Cystitis haemorrhagic [Unknown]
  - Pancytopenia [Unknown]
  - Hepatic enzyme increased [Unknown]
  - Hearing impaired [Unknown]
